FAERS Safety Report 13874989 (Version 1)
Quarter: 2017Q3

REPORT INFORMATION
  Report Type: Spontaneous
  Country: US (occurrence: US)
  Receive Date: 20170816
  Receipt Date: 20170816
  Transmission Date: 20171127
  Serious: No
  Sender: FDA-Public Use
  Company Number: US-ROCHE-1331665

PATIENT
  Sex: Female

DRUGS (3)
  1. LUCENTIS [Suspect]
     Active Substance: RANIBIZUMAB
     Indication: NEOVASCULAR AGE-RELATED MACULAR DEGENERATION
     Dosage: START 4 MONTHS AGO, 1 SHOT, DISCONTINUED
     Route: 065
  2. AVASTIN [Suspect]
     Active Substance: BEVACIZUMAB
     Indication: NEOVASCULAR AGE-RELATED MACULAR DEGENERATION
     Route: 050
     Dates: start: 2010
  3. PROPAFENONE. [Concomitant]
     Active Substance: PROPAFENONE
     Route: 065

REACTIONS (5)
  - Blood gases abnormal [Unknown]
  - Visual impairment [Unknown]
  - Oxygen therapy [Not Recovered/Not Resolved]
  - Renal pain [Recovered/Resolved]
  - Carbon dioxide abnormal [Unknown]

NARRATIVE: CASE EVENT DATE: 2013
